FAERS Safety Report 5243959-5 (Version None)
Quarter: 2007Q1

REPORT INFORMATION
  Report Type: 
  Country: None (occurrence: None)
  Receive Date: 20070220
  Receipt Date: 20070220
  Transmission Date: 20070707
  Serious: Yes (Other)
  Sender: FDA-Public Use
  Company Number: None

PATIENT
  Sex: Male

DRUGS (1)
  1. DEPAKOTE [Suspect]
     Dosage: 750MG BID PO
     Route: 048
     Dates: start: 20060321, end: 20060418

REACTIONS (1)
  - PANCREATITIS [None]
